FAERS Safety Report 6420468-9 (Version None)
Quarter: 2009Q4

REPORT INFORMATION
  Report Type: 
  Country: None (occurrence: None)
  Receive Date: 20091021
  Receipt Date: 20090529
  Transmission Date: 20100525
  Serious: No
  Sender: FDA-Public Use
  Company Number: SPV1-2009-01100

PATIENT
  Age: 12 Year
  Sex: Male
  Weight: 56.7 kg

DRUGS (1)
  1. VYVANSE [Suspect]
     Indication: ATTENTION DEFICIT/HYPERACTIVITY DISORDER
     Dosage: (ONE-HALF CAPSULE DAILY), 1X/DAY:QD, ORAL
     Route: 048
     Dates: start: 20090518

REACTIONS (2)
  - INCORRECT DOSE ADMINISTERED [None]
  - UNEVALUABLE EVENT [None]
